FAERS Safety Report 6879907-1 (Version None)
Quarter: 2010Q3

REPORT INFORMATION
  Report Type: 
  Country: None (occurrence: None)
  Receive Date: 20100728
  Receipt Date: 20100720
  Transmission Date: 20110219
  Serious: Yes (Other)
  Sender: FDA-Public Use
  Company Number: AU-ASTRAZENECA-2010SE25247

PATIENT
  Age: 60 Year
  Sex: Female

DRUGS (7)
  1. ARIMIDEX [Suspect]
     Route: 048
     Dates: start: 20100527, end: 20100529
  2. METOPROLOL SUCCINATE [Concomitant]
     Route: 048
  3. EUROXIG [Concomitant]
  4. DIAMICRON MR [Concomitant]
  5. METFORMIN HCL [Concomitant]
  6. GLICLAZIDE [Concomitant]
  7. PIROXICAM [Concomitant]
     Route: 048

REACTIONS (4)
  - AGGRESSION [None]
  - AGITATION [None]
  - HEADACHE [None]
  - NAUSEA [None]
